FAERS Safety Report 4847133-3 (Version None)
Quarter: 2005Q4

REPORT INFORMATION
  Report Type: 
  Country: None (occurrence: None)
  Receive Date: 20051202
  Receipt Date: 20051116
  Transmission Date: 20060501
  Serious: Yes (Other)
  Sender: FDA-Public Use
  Company Number: 2005161362

PATIENT
  Age: 8 Year
  Sex: Male

DRUGS (4)
  1. METHYLPREDNISOLONE [Suspect]
     Indication: JUVENILE ARTHRITIS
     Dates: start: 20040101
  2. CYCLOSPORINE [Concomitant]
  3. PREDNISONE [Concomitant]
  4. METHOTREXATE [Concomitant]

REACTIONS (10)
  - ANAPHYLACTIC SHOCK [None]
  - CONDITION AGGRAVATED [None]
  - ENCEPHALITIS [None]
  - ENCEPHALOPATHY [None]
  - GRAND MAL CONVULSION [None]
  - HYPERTENSION [None]
  - HYPERTHERMIA [None]
  - JUVENILE ARTHRITIS [None]
  - REVERSIBLE POSTERIOR LEUKOENCEPHALOPATHY SYNDROME [None]
  - VOMITING [None]
